FAERS Safety Report 7265601-4 (Version None)
Quarter: 2011Q1

REPORT INFORMATION
  Report Type: 
  Country: None (occurrence: None)
  Receive Date: 20110131
  Receipt Date: 20101217
  Transmission Date: 20110831
  Serious: Yes (Hospitalization, Other)
  Sender: FDA-Public Use
  Company Number: US-BAYER-201019450NA

PATIENT
  Sex: Female
  Weight: 61 kg

DRUGS (3)
  1. YAZ [Suspect]
     Indication: PREMENSTRUAL SYNDROME
     Dosage: UNK UNK, QD
     Route: 048
     Dates: start: 20070901, end: 20071001
  2. YAZ [Suspect]
     Dosage: UNK
     Dates: start: 20070201, end: 20070401
  3. NAPROXEN SODIUM [Concomitant]
     Dosage: 550 UNK, UNK

REACTIONS (5)
  - BILIARY DYSKINESIA [None]
  - BILIARY COLIC [None]
  - ABDOMINAL PAIN [None]
  - VOMITING [None]
  - NAUSEA [None]
